FAERS Safety Report 6869878-6 (Version None)
Quarter: 2010Q3

REPORT INFORMATION
  Report Type: 
  Country: None (occurrence: None)
  Receive Date: 20100721
  Receipt Date: 20100706
  Transmission Date: 20110219
  Serious: Yes (Death, Life-Threatening)
  Sender: FDA-Public Use
  Company Number: 2010001615

PATIENT
  Age: 63 Year
  Sex: Male

DRUGS (2)
  1. ERLOTINIB HYDROCHLORIDE [Suspect]
     Indication: NON-SMALL CELL LUNG CANCER
     Dosage: QD, ORAL
     Route: 048
     Dates: start: 20100215
  2. PLACEBO (PLACEBO) [Suspect]
     Indication: NON-SMALL CELL LUNG CANCER
     Dosage: Q3W, INTRAVENOUS
     Route: 042
     Dates: start: 20100215

REACTIONS (2)
  - LOSS OF CONSCIOUSNESS [None]
  - PULMONARY EMBOLISM [None]
